FAERS Safety Report 18089422 (Version 2)
Quarter: 2020Q3

REPORT INFORMATION
  Report Type: Report from Study
  Country: None (occurrence: US)
  Receive Date: 20200730
  Receipt Date: 20200923
  Transmission Date: 20201103
  Serious: Yes (Hospitalization)
  Sender: FDA-Public Use
  Company Number: US-ABBVIE-20K-163-3502719-00

PATIENT
  Age: 61 Year
  Sex: Male

DRUGS (3)
  1. ZOLPIDEM [Concomitant]
     Active Substance: ZOLPIDEM TARTRATE
     Indication: SLEEP DISORDER
  2. SKYRIZI [Suspect]
     Active Substance: RISANKIZUMAB-RZAA
     Indication: PSORIASIS
     Dosage: WEEK 4, THEN EVERY 12 WEEKS
     Route: 058
     Dates: start: 20200501
  3. PANTOPRAZOLE [Concomitant]
     Active Substance: PANTOPRAZOLE
     Indication: GASTROOESOPHAGEAL REFLUX DISEASE

REACTIONS (4)
  - Diverticulitis [Recovering/Resolving]
  - Gastrointestinal oedema [Recovering/Resolving]
  - Swelling [Recovering/Resolving]
  - Tremor [Recovering/Resolving]

NARRATIVE: CASE EVENT DATE: 202007
